FAERS Safety Report 17334001 (Version 2)
Quarter: 2020Q1

REPORT INFORMATION
  Report Type: Spontaneous
  Country: FR (occurrence: FR)
  Receive Date: 20200128
  Receipt Date: 20200304
  Transmission Date: 20200409
  Serious: Yes (Hospitalization)
  Sender: FDA-Public Use
  Company Number: FR-MYLANLABS-2020M1009846

PATIENT
  Age: 83 Year
  Sex: Male
  Weight: 94 kg

DRUGS (3)
  1. FLUCONAZOLE ARROW [Suspect]
     Active Substance: FLUCONAZOLE
     Indication: ORAL FUNGAL INFECTION
     Dosage: 200 MG LE J1 PUIS 50MG/J ENSUITE
     Route: 048
     Dates: start: 20191113, end: 20191116
  2. ISOPTINE 120 MG, G?LULE [Suspect]
     Active Substance: VERAPAMIL HYDROCHLORIDE
     Indication: SINUS TACHYCARDIA
     Dosage: 240 MILLIGRAM, QD
     Route: 048
     Dates: start: 20191107
  3. GLICLAZIDE MYLAN 30 MG, COMPRIM? ? LIB?RATION MODIFI?E [Suspect]
     Active Substance: GLICLAZIDE
     Indication: TYPE 2 DIABETES MELLITUS
     Dosage: 60 MILLIGRAM, QD
     Route: 048
     Dates: start: 20191108

REACTIONS (1)
  - Neutropenia [Recovered/Resolved]

NARRATIVE: CASE EVENT DATE: 20191114
